FAERS Safety Report 5087774-4 (Version None)
Quarter: 2006Q3

REPORT INFORMATION
  Report Type: 
  Country: None (occurrence: None)
  Receive Date: 20060824
  Receipt Date: 20060821
  Transmission Date: 20061208
  Serious: Yes (Other)
  Sender: FDA-Public Use
  Company Number: US-JNJFOC-20060805095

PATIENT
  Sex: Male
  Weight: 88.91 kg

DRUGS (11)
  1. REMICADE [Suspect]
     Route: 042
  2. REMICADE [Suspect]
     Route: 042
  3. REMICADE [Suspect]
     Route: 042
  4. REMICADE [Suspect]
     Indication: PSORIATIC ARTHROPATHY
     Route: 042
  5. BUPROPION HCL [Concomitant]
  6. GABAPENTIN [Concomitant]
  7. METHOTREXATE [Concomitant]
  8. TYLENOL W/ CODEINE NO. 3 [Concomitant]
     Indication: PAIN
  9. FOLIC ACID [Concomitant]
  10. CELEBREX [Concomitant]
  11. METHADONE HCL [Concomitant]
     Indication: PAIN
     Route: 048

REACTIONS (1)
  - ANKYLOSING SPONDYLITIS [None]
